FAERS Safety Report 9319532 (Version 13)
Quarter: 2016Q4

REPORT INFORMATION
  Report Type: Spontaneous
  Country: US (occurrence: US)
  Receive Date: 20130530
  Receipt Date: 20161118
  Transmission Date: 20170207
  Serious: Yes (Hospitalization, Other)
  Sender: FDA-Public Use
  Company Number: US-GLAXOSMITHKLINE-A0998844A

PATIENT
  Age: 49 Year
  Sex: Female

DRUGS (17)
  1. FLOLAN [Suspect]
     Active Substance: EPOPROSTENOL SODIUM
     Indication: PULMONARY ARTERIAL HYPERTENSION
     Dosage: 31 NG/KG/MIN CONTINUOUSLY, CONCENTRATION 60,000 NG/ML, VIAL STRENGTH 1.5 MG
     Route: 042
     Dates: start: 20090806
  2. FLOLAN [Suspect]
     Active Substance: EPOPROSTENOL SODIUM
     Dosage: UNK
     Dates: start: 20090806
  3. FLOLAN [Suspect]
     Active Substance: EPOPROSTENOL SODIUM
     Dosage: 40 NG/KG/MIN CO; CONCENTRATION: 60,000 NG/ML; PUMP RATE: 80 ML/DAY; VIAL STRENGTH: 1.5 MG
     Dates: start: 20090814
  4. FLOLAN [Suspect]
     Active Substance: EPOPROSTENOL SODIUM
     Dosage: 22 NG/KG/MIN, CONCENTRATION 45,000 NG/ML
     Route: 042
     Dates: start: 20090814
  5. FLOLAN [Suspect]
     Active Substance: EPOPROSTENOL SODIUM
     Indication: PULMONARY ARTERIAL HYPERTENSION
     Dosage: UNK, U
  6. FLOLAN [Suspect]
     Active Substance: EPOPROSTENOL SODIUM
     Dosage: 36 NG/KG/MIN CONTINUOUS
     Route: 042
     Dates: start: 20090814
  7. FLOLAN [Suspect]
     Active Substance: EPOPROSTENOL SODIUM
     Dosage: 28 NG/KG/MIN, UNK
     Route: 042
  8. ADCIRCA [Concomitant]
     Active Substance: TADALAFIL
  9. FLOLAN [Suspect]
     Active Substance: EPOPROSTENOL SODIUM
     Dosage: 36 DF, CO
  10. COUMADIN [Concomitant]
     Active Substance: WARFARIN SODIUM
     Dosage: UNK
  11. FLOLAN [Suspect]
     Active Substance: EPOPROSTENOL SODIUM
     Dosage: 31 DF, CO
  12. FLOLAN [Suspect]
     Active Substance: EPOPROSTENOL SODIUM
     Dosage: 31 NG/KG/MIN, UNK
  13. FLOLAN [Suspect]
     Active Substance: EPOPROSTENOL SODIUM
     Dosage: UNK, U
  14. WARFARIN [Concomitant]
     Active Substance: WARFARIN
     Dosage: UNK
  15. FLOLAN [Suspect]
     Active Substance: EPOPROSTENOL SODIUM
     Dosage: UNK
     Dates: start: 20090806
  16. FLOLAN [Suspect]
     Active Substance: EPOPROSTENOL SODIUM
     Dosage: 22 NG/KG/MIN CONTINUOUS; CONCENTRATION: 45,000 NG/ML; PUMP RATE: 64 ML/DAY; VIAL STRENGTH: 1.5 MG
     Dates: start: 20090814
  17. FLOLAN [Suspect]
     Active Substance: EPOPROSTENOL SODIUM
     Dosage: 28 NG/KG/MIN CONTINUOUS; CONCENTRATION: 60,000 NG/ML; PUMP RATE: 73 ML/DAY; VIAL STRENGTH: 1.5 MG
     Route: 042
     Dates: start: 20090814

REACTIONS (20)
  - Sepsis [Recovering/Resolving]
  - Hospitalisation [Not Recovered/Not Resolved]
  - Incorrect dose administered [Unknown]
  - Weight decreased [Unknown]
  - Decreased appetite [Unknown]
  - Infection [Unknown]
  - Flushing [Unknown]
  - Device related infection [Unknown]
  - Diarrhoea [Unknown]
  - Device breakage [Unknown]
  - Vomiting [Unknown]
  - Adverse drug reaction [Unknown]
  - White blood cell count increased [Unknown]
  - Papule [Unknown]
  - Nausea [Unknown]
  - Asthenia [Unknown]
  - Catheter site pruritus [Unknown]
  - Pain in jaw [Unknown]
  - Musculoskeletal pain [Unknown]
  - Unevaluable event [Unknown]

NARRATIVE: CASE EVENT DATE: 201512
